FAERS Safety Report 9940763 (Version 1)
Quarter: 2014Q1

REPORT INFORMATION
  Report Type: Spontaneous
  Country: US (occurrence: US)
  Receive Date: 20140303
  Receipt Date: 20140303
  Transmission Date: 20141002
  Serious: No
  Sender: FDA-Public Use
  Company Number: US-PFIZER INC-2014058991

PATIENT
  Age: 64 Year
  Sex: Female
  Weight: 92.97 kg

DRUGS (1)
  1. LYRICA [Suspect]
     Indication: NEURALGIA
     Dosage: UNK
     Dates: start: 2010

REACTIONS (3)
  - Pain [Unknown]
  - Nausea [Unknown]
  - Diarrhoea [Unknown]
